FAERS Safety Report 5969674-8 (Version None)
Quarter: 2008Q4

REPORT INFORMATION
  Report Type: 
  Country: None (occurrence: None)
  Receive Date: 20081126
  Receipt Date: 20080918
  Transmission Date: 20090506
  Serious: No
  Sender: FDA-Public Use
  Company Number: US-ABBOTT-08P-163-0476870-00

PATIENT
  Sex: Male

DRUGS (4)
  1. SIMCOR [Suspect]
     Indication: BLOOD CHOLESTEROL
     Dosage: 1000/20MG DAILY
     Route: 048
     Dates: start: 20080701
  2. ACETYLSALICYLIC ACID SRT [Concomitant]
     Indication: DRUG USE FOR UNKNOWN INDICATION
  3. MEFENAMIC ACID [Concomitant]
     Indication: DRUG USE FOR UNKNOWN INDICATION
     Route: 048
  4. UNNAMED BP MED [Concomitant]
     Indication: BLOOD PRESSURE

REACTIONS (4)
  - FLUSHING [None]
  - MIDDLE INSOMNIA [None]
  - PARAESTHESIA [None]
  - PRURITUS [None]
